FAERS Safety Report 9034713 (Version 4)
Quarter: 2013Q2

REPORT INFORMATION
  Report Type: Report from Study
  Country: JP (occurrence: JP)
  Receive Date: 20130128
  Receipt Date: 20130422
  Transmission Date: 20140414
  Serious: No
  Sender: FDA-Public Use
  Company Number: JP-GLAXOSMITHKLINE-B0862472A

PATIENT
  Age: 65 Year
  Sex: Male

DRUGS (22)
  1. SAMTIREL [Suspect]
     Indication: PNEUMOCYSTIS JIROVECII PNEUMONIA
     Dosage: 750MG TWICE PER DAY
     Route: 048
     Dates: start: 20120802, end: 20120806
  2. WARFARIN POTASSIUM [Suspect]
     Indication: PRODUCT USED FOR UNKNOWN INDICATION
     Route: 048
     Dates: end: 20121027
  3. PREDONINE [Suspect]
     Indication: PNEUMOCYSTIS JIROVECII PNEUMONIA
     Dosage: 15MG TWICE PER DAY
     Route: 048
     Dates: start: 20120626, end: 20120626
  4. PREDONINE [Suspect]
     Indication: PNEUMOCYSTIS JIROVECII PNEUMONIA
     Route: 048
     Dates: start: 20120627, end: 20120701
  5. PREDONINE [Suspect]
     Indication: PNEUMOCYSTIS JIROVECII PNEUMONIA
     Dosage: 10MG TWICE PER DAY
     Route: 048
     Dates: start: 20120708, end: 20120708
  6. PREDONINE [Suspect]
     Indication: PNEUMOCYSTIS JIROVECII PNEUMONIA
     Dosage: 15MG TWICE PER DAY
     Route: 048
     Dates: start: 20120712, end: 20120712
  7. PREDONINE [Suspect]
     Indication: PNEUMOCYSTIS JIROVECII PNEUMONIA
     Dosage: 10MG TWICE PER DAY
     Route: 048
     Dates: start: 20120722, end: 20120729
  8. PREDONINE [Suspect]
     Indication: PNEUMOCYSTIS JIROVECII PNEUMONIA
     Dosage: 5MG TWICE PER DAY
     Route: 048
     Dates: start: 20120802, end: 20120805
  9. BAKTAR [Suspect]
     Indication: PNEUMOCYSTIS JIROVECII PNEUMONIA
     Dosage: 4IUAX THREE TIMES PER DAY
     Route: 048
     Dates: start: 20120717, end: 20120719
  10. BAKTAR [Suspect]
     Indication: PNEUMOCYSTIS JIROVECII PNEUMONIA
     Dosage: 3IUAX THREE TIMES PER DAY
     Route: 048
     Dates: start: 20120720, end: 20120730
  11. BAKTAR [Suspect]
     Indication: PNEUMOCYSTIS JIROVECII PNEUMONIA
     Dosage: 2IUAX TWICE PER DAY
     Route: 048
     Dates: start: 20120801, end: 20120801
  12. BENAMBAX [Concomitant]
     Indication: PNEUMOCYSTIS JIROVECII PNEUMONIA
     Dosage: 300MG PER DAY
     Route: 055
     Dates: start: 20120608, end: 20120628
  13. RITUXAN [Concomitant]
     Indication: LYMPHOMA
     Route: 042
     Dates: start: 20120627, end: 20120627
  14. SAXIZON [Concomitant]
     Indication: LYMPHOMA
     Route: 042
     Dates: start: 20120624, end: 20120624
  15. TAKEPRON [Concomitant]
     Dosage: 15MG PER DAY
     Route: 048
     Dates: start: 20120802
  16. FUROSEMIDE [Concomitant]
     Dosage: 20MG PER DAY
     Route: 048
     Dates: start: 20120802
  17. NU-LOTAN [Concomitant]
     Dosage: 50MG PER DAY
     Route: 048
     Dates: start: 20120802
  18. LACTEC [Concomitant]
     Indication: PNEUMOCYSTIS JIROVECII PNEUMONIA
     Dosage: 1000ML PER DAY
     Route: 042
     Dates: start: 20120802, end: 20120806
  19. MOHRUS [Concomitant]
     Indication: PNEUMOCYSTIS JIROVECII PNEUMONIA
     Dosage: 1IUAX PER DAY
     Route: 062
     Dates: start: 20120802, end: 20120806
  20. CALONAL [Concomitant]
     Dosage: 400MG PER DAY
     Route: 048
     Dates: start: 20120802, end: 20120806
  21. ENDOXAN [Concomitant]
     Indication: LYMPHOMA
     Route: 042
     Dates: start: 20120627, end: 20120627
  22. ADRIACIN [Concomitant]
     Indication: LYMPHOMA
     Route: 042
     Dates: start: 20120627, end: 20120627

REACTIONS (1)
  - Liver function test abnormal [Recovering/Resolving]
